FAERS Safety Report 13073878 (Version 1)
Quarter: 2016Q4

REPORT INFORMATION
  Report Type: Spontaneous
  Country: US (occurrence: US)
  Receive Date: 20161229
  Receipt Date: 20161229
  Transmission Date: 20170207
  Serious: Yes (Death, Other)
  Sender: FDA-Public Use
  Company Number: US-BAUSCH-BL-2016-032596

PATIENT
  Age: 79 Year
  Sex: Male

DRUGS (1)
  1. XIFAXAN [Suspect]
     Active Substance: RIFAXIMIN
     Indication: PRODUCT USED FOR UNKNOWN INDICATION
     Route: 065

REACTIONS (4)
  - Hepatic cirrhosis [Unknown]
  - Chronic obstructive pulmonary disease [Unknown]
  - Dementia [Unknown]
  - Death [Fatal]

NARRATIVE: CASE EVENT DATE: 20161221
